FAERS Safety Report 6098122-5 (Version None)
Quarter: 2009Q1

REPORT INFORMATION
  Report Type: 
  Country: None (occurrence: None)
  Receive Date: 20090227
  Receipt Date: 20080227
  Transmission Date: 20090719
  Serious: Yes (Other)
  Sender: FDA-Public Use
  Company Number: US-RB-008853-07

PATIENT
  Sex: Female

DRUGS (5)
  1. SUBUTEX [Suspect]
     Route: 060
     Dates: start: 20071120
  2. SUBOXONE [Suspect]
     Route: 060
     Dates: start: 20060801, end: 20070901
  3. SUBOXONE [Suspect]
     Route: 060
     Dates: start: 20070901, end: 20071119
  4. NAPROXEN [Concomitant]
     Indication: PAIN
     Dosage: UNKNOWN DOSE
     Route: 048
  5. PRILOSEC [Concomitant]
     Route: 048

REACTIONS (2)
  - ABORTION SPONTANEOUS [None]
  - DRUG EXPOSURE DURING PREGNANCY [None]
